FAERS Safety Report 5391485-5 (Version None)
Quarter: 2007Q3

REPORT INFORMATION
  Report Type: 
  Country: None (occurrence: None)
  Receive Date: 20070719
  Receipt Date: 20070711
  Transmission Date: 20080115
  Serious: Yes (Other)
  Sender: FDA-Public Use
  Company Number: US-TYCO HEALTHCARE/MALLINCKRODT-T200700792

PATIENT
  Age: 63 Year
  Sex: Female

DRUGS (6)
  1. ACETAMINOPHEN AND OXYCODONE HCL [Suspect]
  2. OTHER CHEMOTHERAPEUTICS [Concomitant]
  3. FENTANYL [Concomitant]
  4. XELODA [Concomitant]
  5. ZOFRAN [Concomitant]
  6. METHADONE HCL [Concomitant]

REACTIONS (1)
  - ARTERIAL THROMBOSIS [None]
